FAERS Safety Report 25917567 (Version 1)
Quarter: 2025Q4

REPORT INFORMATION
  Report Type: Spontaneous
  Country: NG (occurrence: NG)
  Receive Date: 20251014
  Receipt Date: 20251014
  Transmission Date: 20260117
  Serious: Yes (Other)
  Sender: ACCORD
  Company Number: NG-MLMSERVICE-20250922-PI654349-00101-1

PATIENT
  Age: 30 Year
  Sex: Male

DRUGS (3)
  1. CISPLATIN [Suspect]
     Active Substance: CISPLATIN
     Indication: Plasmacytoma
     Dosage: 2 CYCLES
  2. ADRIAMYCIN [Suspect]
     Active Substance: DOXORUBICIN HYDROCHLORIDE
     Indication: Plasmacytoma
     Dosage: 2 CYCLES
  3. CYCLOPHOSPHAMIDE [Suspect]
     Active Substance: CYCLOPHOSPHAMIDE
     Indication: Plasmacytoma
     Dosage: 2 CYCLES

REACTIONS (1)
  - Anaemia [Recovered/Resolved]
